FAERS Safety Report 24366360 (Version 1)
Quarter: 2024Q3

REPORT INFORMATION
  Report Type: Spontaneous
  Country: AU (occurrence: AU)
  Receive Date: 20240926
  Receipt Date: 20240926
  Transmission Date: 20241016
  Serious: Yes (Other)
  Sender: PFIZER
  Company Number: AU-PFIZER INC-PV202400124479

PATIENT
  Sex: Female

DRUGS (3)
  1. ERYTHROMYCIN [Suspect]
     Active Substance: ERYTHROMYCIN
     Indication: Pneumonia
     Dosage: 2 G
     Route: 048
     Dates: start: 19840810, end: 19840815
  2. PENICILLIN V [Suspect]
     Active Substance: PENICILLIN V
     Indication: Pneumonia
     Dosage: 2 G
     Route: 048
     Dates: start: 19840810, end: 19840813
  3. TOBRAMYCIN [Suspect]
     Active Substance: TOBRAMYCIN\TOBRAMYCIN SULFATE
     Indication: Pneumonia
     Dosage: 180 MG
     Route: 042
     Dates: start: 19840805, end: 19840810

REACTIONS (2)
  - Dermatitis exfoliative [Recovered/Resolved]
  - Rash maculo-papular [Recovered/Resolved]

NARRATIVE: CASE EVENT DATE: 19840813
